FAERS Safety Report 5146382-7 (Version None)
Quarter: 2006Q4

REPORT INFORMATION
  Report Type: 
  Country: None (occurrence: None)
  Receive Date: 20061108
  Receipt Date: 20061106
  Transmission Date: 20070319
  Serious: Yes (Hospitalization)
  Sender: FDA-Public Use
  Company Number: US-ROXANE LABORATORIES, INC-2006-BP-12908RO

PATIENT
  Age: 38 Year
  Sex: Male

DRUGS (9)
  1. FLUCONAZOLE [Suspect]
     Indication: EVIDENCE BASED TREATMENT
     Dosage: 400 MG DAILY
     Route: 042
  2. AMPICILLIN AND SULBACTAM [Suspect]
     Indication: PNEUMONIA
     Route: 042
  3. AZITHROMYCIN [Suspect]
     Indication: PNEUMONIA
     Route: 042
  4. VANCOMYCIN [Suspect]
     Indication: DRUG THERAPY CHANGED
  5. IMIPENEM [Suspect]
     Indication: DRUG THERAPY CHANGED
  6. SULFAMETHOXAZOLE + TRIMETHOPRIM [Suspect]
     Indication: PNEUMOCYSTIS JIROVECI PNEUMONIA
  7. HYDROCHLOROTHIAZIDE [Concomitant]
  8. LOPRESSOR [Concomitant]
  9. ASPIRIN [Concomitant]

REACTIONS (3)
  - ADRENAL INSUFFICIENCY [None]
  - BLOOD POTASSIUM INCREASED [None]
  - BLOOD SODIUM DECREASED [None]
